FAERS Safety Report 13001384 (Version 2)
Quarter: 2016Q4

REPORT INFORMATION
  Report Type: Report from Study
  Country: DE (occurrence: DE)
  Receive Date: 20161206
  Receipt Date: 20161222
  Transmission Date: 20170207
  Serious: Yes (Other)
  Sender: FDA-Public Use
  Company Number: PHHY2016DE166066

PATIENT
  Sex: Female

DRUGS (9)
  1. METOPROLOL RATIOPHARM [Concomitant]
     Indication: HYPERTENSION
     Dosage: 47.5 MG, QD
     Route: 048
     Dates: start: 2013, end: 201606
  2. NOVAMINSULFON [Concomitant]
     Active Substance: METAMIZOLE
     Indication: PAIN
     Dosage: 500 MG, QID
     Route: 048
     Dates: start: 201604
  3. PANTOZOL [Concomitant]
     Active Substance: PANTOPRAZOLE SODIUM
     Indication: PRODUCT USED FOR UNKNOWN INDICATION
     Dosage: 40 MG, BID
     Route: 048
     Dates: start: 201604
  4. OPDIVO [Suspect]
     Active Substance: NIVOLUMAB
     Indication: METASTATIC RENAL CELL CARCINOMA
     Dosage: 3 MG/KG, UNK
     Route: 042
     Dates: start: 20160928
  5. CARMEN [Concomitant]
     Active Substance: LERCANIDIPINE
     Indication: HYPERTENSION
     Dosage: 10 MG, QD
     Route: 048
     Dates: start: 201606
  6. PARACETAMOL-RATIOPHARM [Concomitant]
     Indication: PAIN
     Dosage: 1000 MG, PRN
     Route: 048
     Dates: start: 201606
  7. VOTRIENT [Suspect]
     Active Substance: PAZOPANIB HYDROCHLORIDE
     Indication: METASTATIC RENAL CELL CARCINOMA
     Dosage: 800 MG, QD
     Route: 048
     Dates: start: 20160629, end: 20160920
  8. RAMIPRIL RATIOPHARM [Concomitant]
     Indication: HYPERTENSION
     Dosage: 2.5 MG, BID
     Route: 048
     Dates: start: 201606
  9. TRAMAL [Concomitant]
     Active Substance: TRAMADOL
     Indication: PAIN
     Dosage: 100 MG, BID
     Route: 048
     Dates: start: 201604

REACTIONS (3)
  - Haemoglobin decreased [Unknown]
  - Malignant neoplasm progression [Unknown]
  - Anaemia of malignant disease [Recovering/Resolving]

NARRATIVE: CASE EVENT DATE: 20161026
